FAERS Safety Report 5367383-X (Version None)
Quarter: 2007Q2

REPORT INFORMATION
  Report Type: 
  Country: None (occurrence: None)
  Receive Date: 20070622
  Receipt Date: 20060818
  Transmission Date: 20071010
  Serious: No
  Sender: FDA-Public Use
  Company Number: US-ASTRAZENECA-2006UW16512

PATIENT
  Age: 57 Year
  Sex: Female

DRUGS (2)
  1. PULMICORT TURBULALER [Suspect]
     Route: 055
  2. LIPITOR [Concomitant]

REACTIONS (2)
  - ABNORMAL SENSATION IN EYE [None]
  - HEADACHE [None]
